FAERS Safety Report 25324553 (Version 1)
Quarter: 2025Q2

REPORT INFORMATION
  Report Type: Spontaneous
  Country: US (occurrence: US)
  Receive Date: 20250516
  Receipt Date: 20250516
  Transmission Date: 20250717
  Serious: No
  Sender: NOVEN
  Company Number: US-NOVEN PHARMACEUTICALS, INC.-2025-NOV-US000640

PATIENT
  Age: 55 Year
  Sex: Female
  Weight: 45.351 kg

DRUGS (2)
  1. DAYTRANA [Suspect]
     Active Substance: METHYLPHENIDATE
     Indication: Attention deficit hyperactivity disorder
     Route: 062
  2. DAYTRANA [Suspect]
     Active Substance: METHYLPHENIDATE
     Indication: Seizure

REACTIONS (6)
  - Therapeutic response unexpected [Not Recovered/Not Resolved]
  - Application site erythema [Recovered/Resolved]
  - Application site pruritus [Unknown]
  - Application site irritation [Not Recovered/Not Resolved]
  - Application site burn [Unknown]
  - Off label use [Not Recovered/Not Resolved]
